FAERS Safety Report 5015001-2 (Version None)
Quarter: 2006Q2

REPORT INFORMATION
  Report Type: 
  Country: None (occurrence: None)
  Receive Date: 20060530
  Receipt Date: 20060516
  Transmission Date: 20061013
  Serious: Yes (Other)
  Sender: FDA-Public Use
  Company Number: THYM-10957

PATIENT
  Age: 59 Year
  Sex: Female

DRUGS (6)
  1. THYMOGLOBULIN [Suspect]
     Indication: RENAL TRANSPLANT
     Dates: start: 20060515, end: 20060515
  2. DIPRIVAN [Concomitant]
  3. MANNITOL [Concomitant]
  4. SODIUM BICARBONATE [Concomitant]
  5. NIMBEX [Concomitant]
  6. SOLU-MEDROL [Concomitant]

REACTIONS (3)
  - DRUG HYPERSENSITIVITY [None]
  - HYPOTENSION [None]
  - OXYGEN SATURATION DECREASED [None]
